FAERS Safety Report 8898057 (Version 2)
Quarter: 2014Q2

REPORT INFORMATION
  Report Type: Report from Study
  Country: DE (occurrence: DE)
  Receive Date: 20121109
  Receipt Date: 20131001
  Transmission Date: 20141212
  Serious: Yes (Hospitalization, Other)
  Sender: FDA-Public Use
  Company Number: DE-MERCK-2012SP013883

PATIENT
  Age: 41 Year
  Sex: Female
  Weight: 78 kg

DRUGS (1)
  1. SUGAMMADEX SODIUM [Suspect]
     Indication: NEUROMUSCULAR BLOCKADE REVERSAL
     Dosage: 3.1 ML, UNK
     Route: 040
     Dates: start: 20120110, end: 20120110

REACTIONS (2)
  - Post procedural haemorrhage [Recovered/Resolved]
  - C-reactive protein increased [Recovered/Resolved]
